FAERS Safety Report 14297575 (Version 1)
Quarter: 2017Q4

REPORT INFORMATION
  Report Type: Spontaneous
  Country: US (occurrence: US)
  Receive Date: 20171218
  Receipt Date: 20171218
  Transmission Date: 20180321
  Serious: Yes (Death, Other)
  Sender: FDA-Public Use
  Company Number: US-TEVA-2017-US-833636

PATIENT
  Sex: Female

DRUGS (1)
  1. FLUOXETINE [Suspect]
     Active Substance: FLUOXETINE HYDROCHLORIDE
     Indication: ANTIDEPRESSANT THERAPY
     Route: 065
     Dates: start: 2014, end: 2017

REACTIONS (2)
  - Death [Fatal]
  - Antidepressant drug level above therapeutic [Unknown]

NARRATIVE: CASE EVENT DATE: 2017
